FAERS Safety Report 8336734-6 (Version None)
Quarter: 2012Q2

REPORT INFORMATION
  Report Type: 
  Country: None (occurrence: None)
  Receive Date: 20120504
  Receipt Date: 20120430
  Transmission Date: 20120825
  Serious: No
  Sender: FDA-Public Use
  Company Number: US-JNJFOC-20120405195

PATIENT
  Sex: Female
  Weight: 113.4 kg

DRUGS (25)
  1. FENTANYL-100 [Suspect]
     Indication: EXOSTOSIS
     Route: 062
     Dates: start: 20120301
  2. LISINOPRIL [Concomitant]
     Indication: PROPHYLAXIS
     Route: 048
     Dates: start: 19980101
  3. CALCIUM [Concomitant]
     Indication: NUTRITIONAL SUPPORT
     Dates: start: 19980101
  4. FOLIC ACID [Concomitant]
     Indication: CARDIAC DISORDER
     Route: 048
  5. IRON [Concomitant]
     Indication: NEUROPATHY PERIPHERAL
     Route: 048
     Dates: start: 19970101
  6. FENTANYL-100 [Suspect]
     Route: 062
     Dates: start: 20120201, end: 20120301
  7. SYNTHROID [Concomitant]
     Indication: HYPOTHYROIDISM
     Route: 048
     Dates: start: 20020101
  8. SERTRALINE HYDROCHLORIDE [Concomitant]
     Indication: SLEEP DISORDER
     Route: 048
     Dates: start: 20090101
  9. GABAPENTIN [Concomitant]
     Indication: NEUROPATHY PERIPHERAL
     Route: 048
     Dates: start: 19970101
  10. FENTANYL-100 [Suspect]
     Route: 062
     Dates: start: 20120201, end: 20120201
  11. FENTANYL-100 [Suspect]
     Indication: BRAIN NEOPLASM MALIGNANT
     Route: 062
     Dates: start: 20120201, end: 20120201
  12. GLIMEPIRIDE [Concomitant]
     Indication: DIABETES MELLITUS
     Route: 048
     Dates: start: 20110101
  13. FENTANYL-100 [Suspect]
     Route: 062
     Dates: start: 20120301
  14. FENTANYL-100 [Suspect]
     Route: 062
     Dates: start: 20120201, end: 20120301
  15. FENTANYL-100 [Suspect]
     Indication: SURGERY
     Route: 062
     Dates: start: 20120201, end: 20120201
  16. FENTANYL-100 [Suspect]
     Route: 062
     Dates: start: 20120201, end: 20120301
  17. FENTANYL-100 [Suspect]
     Route: 062
     Dates: start: 20120301
  18. SERTRALINE HYDROCHLORIDE [Concomitant]
     Indication: FEELING OF RELAXATION
     Route: 048
     Dates: start: 20090101
  19. FENTANYL-100 [Suspect]
     Route: 062
     Dates: start: 20120301
  20. ASPIRIN [Concomitant]
     Indication: CARDIAC DISORDER
     Route: 048
     Dates: start: 19980101
  21. VITAMIN [Concomitant]
     Indication: NUTRITIONAL SUPPORT
     Route: 048
  22. FENTANYL-100 [Suspect]
     Indication: HEADACHE
     Route: 062
     Dates: start: 20120201, end: 20120201
  23. FENTANYL-100 [Suspect]
     Route: 062
     Dates: start: 20120201, end: 20120301
  24. ROPINIROLE [Concomitant]
     Indication: RESTLESS LEGS SYNDROME
     Route: 048
     Dates: start: 20070101
  25. COENZYME 10 [Concomitant]
     Indication: CARDIAC DISORDER
     Route: 048
     Dates: start: 20100101

REACTIONS (4)
  - HEADACHE [None]
  - WRONG TECHNIQUE IN DRUG USAGE PROCESS [None]
  - PRODUCT QUALITY ISSUE [None]
  - THERAPEUTIC RESPONSE DECREASED [None]
